FAERS Safety Report 9177070 (Version 3)
Quarter: 2014Q2

REPORT INFORMATION
  Report Type: Spontaneous
  Country: US (occurrence: US)
  Receive Date: 20130321
  Receipt Date: 20140618
  Transmission Date: 20141212
  Serious: Yes (Death, Other)
  Sender: FDA-Public Use
  Company Number: US-JNJFOC-2000024065US

PATIENT
  Age: 43 Year
  Sex: 0

DRUGS (3)
  1. MOTRIN [Suspect]
     Indication: COMPLETED SUICIDE
     Route: 048
  2. FLEXERIL [Suspect]
     Indication: COMPLETED SUICIDE
     Route: 048
  3. ATIVAN [Suspect]
     Indication: COMPLETED SUICIDE
     Route: 048

REACTIONS (8)
  - Death [Fatal]
  - Completed suicide [Fatal]
  - Brain oedema [Fatal]
  - Alkalosis [Fatal]
  - Coma [Fatal]
  - Convulsion [Fatal]
  - Coagulopathy [Fatal]
  - Overdose [Fatal]
